FAERS Safety Report 7386248-5 (Version None)
Quarter: 2011Q1

REPORT INFORMATION
  Report Type: 
  Country: None (occurrence: None)
  Receive Date: 20110329
  Receipt Date: 20110329
  Transmission Date: 20110831
  Serious: Yes (Hospitalization)
  Sender: FDA-Public Use
  Company Number: None

PATIENT
  Age: 52 Year
  Sex: Male
  Weight: 79.3795 kg

DRUGS (2)
  1. DULERA TABLET [Suspect]
     Indication: ASTHMA
     Dosage: 1 PUFF 2X IN THE MORNING INHAL
     Route: 055
     Dates: start: 20110314, end: 20110324
  2. ALLERGY SHOTS [Concomitant]

REACTIONS (4)
  - INCOHERENT [None]
  - VOMITING [None]
  - BRAIN OEDEMA [None]
  - MEMORY IMPAIRMENT [None]
